FAERS Safety Report 4413053-1 (Version None)
Quarter: 2004Q3

REPORT INFORMATION
  Report Type: 
  Country: None (occurrence: None)
  Receive Date: 20040802
  Receipt Date: 20040802
  Transmission Date: 20050211
  Serious: Yes (Hospitalization)
  Sender: FDA-Public Use
  Company Number: None

PATIENT
  Age: 62 Year
  Sex: Male
  Weight: 144 kg

DRUGS (2)
  1. SIMVASTATIN [Suspect]
     Indication: DIABETES MELLITUS NON-INSULIN-DEPENDENT
     Dosage: 40 MG EVERY EVEN ORAL
     Route: 048
     Dates: start: 20040517, end: 20040701
  2. SIMVASTATIN [Suspect]
     Indication: HYPERCHOLESTEROLAEMIA
     Dosage: 40 MG EVERY EVEN ORAL
     Route: 048
     Dates: start: 20040517, end: 20040701

REACTIONS (3)
  - MOBILITY DECREASED [None]
  - MUSCLE CRAMP [None]
  - MYOPATHY [None]
